FAERS Safety Report 6681668-6 (Version None)
Quarter: 2010Q2

REPORT INFORMATION
  Report Type: 
  Country: None (occurrence: None)
  Receive Date: 20100414
  Receipt Date: 20100408
  Transmission Date: 20101027
  Serious: Yes (Other)
  Sender: FDA-Public Use
  Company Number: JP-ABBOTT-09P-087-0614228-00

PATIENT
  Age: 93 Year
  Sex: Male

DRUGS (7)
  1. LEUPROLIDE ACETATE [Suspect]
     Indication: PROSTATE CANCER STAGE II
     Route: 058
     Dates: start: 20061109
  2. FLIVAS [Concomitant]
     Indication: BENIGN PROSTATIC HYPERPLASIA
     Route: 048
  3. BUP-4 [Concomitant]
     Indication: NEUROGENIC BLADDER
     Route: 048
  4. MENIACE [Concomitant]
     Indication: DIZZINESS
     Route: 048
  5. ALACEPRIL [Concomitant]
     Indication: HYPERTENSION
     Route: 048
  6. DEPROMEL [Concomitant]
     Indication: DEPRESSION
     Route: 048
  7. ASPIRIN [Concomitant]
     Indication: CEREBROVASCULAR ACCIDENT PROPHYLAXIS
     Route: 048

REACTIONS (1)
  - CEREBRAL INFARCTION [None]
